FAERS Safety Report 10038780 (Version 1)
Quarter: 2014Q1

REPORT INFORMATION
  Report Type: Spontaneous
  Country: US (occurrence: US)
  Receive Date: 20140326
  Receipt Date: 20140326
  Transmission Date: 20141002
  Serious: Yes (Other)
  Sender: FDA-Public Use
  Company Number: US-JNJFOC-20140306484

PATIENT
  Age: 78 Year
  Sex: Male

DRUGS (1)
  1. ZYTIGA [Suspect]
     Indication: PROSTATE CANCER
     Dosage: 250MG 4 TIMES A DAY
     Route: 048
     Dates: start: 20121218

REACTIONS (2)
  - Dysphagia [Unknown]
  - Pain [Not Recovered/Not Resolved]
